FAERS Safety Report 25548881 (Version 1)
Quarter: 2025Q3

REPORT INFORMATION
  Report Type: Spontaneous
  Country: US (occurrence: US)
  Receive Date: 20250714
  Receipt Date: 20250714
  Transmission Date: 20251021
  Serious: Yes (Hospitalization, Other)
  Sender: LANTHEUS MEDICAL IMAGING
  Company Number: US-LANTHEUS-LMI-2025-00888

PATIENT
  Age: 76 Year
  Sex: Male

DRUGS (1)
  1. DEFINITY [Suspect]
     Active Substance: PERFLUTREN
     Indication: Echocardiogram

REACTIONS (4)
  - Pulmonary embolism [Unknown]
  - Cardiac arrest [Unknown]
  - Pulseless electrical activity [Unknown]
  - Headache [Unknown]
